FAERS Safety Report 7039610-4 (Version None)
Quarter: 2010Q4

REPORT INFORMATION
  Report Type: 
  Country: None (occurrence: None)
  Receive Date: 20101012
  Receipt Date: 20101004
  Transmission Date: 20110411
  Serious: Yes (Other)
  Sender: FDA-Public Use
  Company Number: A0879239A

PATIENT
  Age: 55 Year
  Sex: Female

DRUGS (4)
  1. TYKERB [Suspect]
     Indication: BREAST CANCER
     Dosage: 5TAB PER DAY
     Route: 048
     Dates: start: 20100701
  2. SYNTHROID [Concomitant]
  3. COREG [Concomitant]
  4. DIOVAN [Concomitant]

REACTIONS (9)
  - ABDOMINAL PAIN UPPER [None]
  - COUGH [None]
  - DEPRESSION [None]
  - DIARRHOEA [None]
  - DISCOMFORT [None]
  - FATIGUE [None]
  - HEPATIC NEOPLASM [None]
  - RHINORRHOEA [None]
  - SKIN LACERATION [None]
